FAERS Safety Report 6077708-8 (Version None)
Quarter: 2009Q1

REPORT INFORMATION
  Report Type: 
  Country: None (occurrence: None)
  Receive Date: 20090211
  Receipt Date: 20090128
  Transmission Date: 20090719
  Serious: Yes (Life-Threatening)
  Sender: FDA-Public Use
  Company Number: IDA-00182

PATIENT
  Age: 45 Year
  Sex: Female

DRUGS (3)
  1. AVLOCARDYL         (PROPRANOLOL) STRENGTH: UNK / 40MG [Suspect]
     Dosage: UNK / 1200 MG ONCE
     Route: 048
     Dates: start: 20081215, end: 20081215
  2. ATHYMIL         (MIANSERIN HYDROCHLORIDE) [Suspect]
     Dosage: SEVERAL TABLET FOR SUICIDE ATTEMPT BY INTENTIONAL OVERDOSE
     Route: 048
     Dates: start: 20081215, end: 20081215
  3. TRANXENE [Suspect]
     Dosage: SEVERAL TABLET FOR SUICIDE ATTEMP BY INTENTIONAL OVERDOSE
     Route: 048
     Dates: start: 20081215, end: 20081215

REACTIONS (6)
  - BRADYCARDIA [None]
  - HYPOTENSION [None]
  - INTENTIONAL OVERDOSE [None]
  - RESPIRATORY DISTRESS [None]
  - SUICIDE ATTEMPT [None]
  - VOMITING [None]
